FAERS Safety Report 17124561 (Version 1)
Quarter: 2019Q4

REPORT INFORMATION
  Report Type: Spontaneous
  Country: FR (occurrence: FR)
  Receive Date: 20191206
  Receipt Date: 20191206
  Transmission Date: 20200122
  Serious: Yes (Hospitalization, Other)
  Sender: FDA-Public Use
  Company Number: FR-PFIZER INC-2019527203

PATIENT
  Age: 88 Year
  Sex: Female

DRUGS (3)
  1. IMETH [Suspect]
     Active Substance: METHOTREXATE SODIUM
     Indication: RHEUMATOID ARTHRITIS
     Dosage: 10 MG, WEEKLY
     Route: 048
     Dates: start: 20130927, end: 20191010
  2. CIFLOX [CIPROFLOXACIN] [Interacting]
     Active Substance: CIPROFLOXACIN
     Indication: URINARY TRACT INFECTION
     Dosage: 500 MG, 1X/DAY
     Route: 048
     Dates: start: 20191005, end: 20191015
  3. SELEXID [MECILLINAM] [Suspect]
     Active Substance: AMDINOCILLIN
     Indication: URINARY TRACT INFECTION
     Dosage: 800 MG, 1X/DAY
     Route: 048
     Dates: start: 20190909, end: 20190914

REACTIONS (2)
  - Drug interaction [Unknown]
  - Pancytopenia [Recovered/Resolved]

NARRATIVE: CASE EVENT DATE: 20191016
